FAERS Safety Report 15608599 (Version 1)
Quarter: 2018Q4

REPORT INFORMATION
  Report Type: Spontaneous
  Country: JP (occurrence: JP)
  Receive Date: 20181112
  Receipt Date: 20181112
  Transmission Date: 20190205
  Serious: Yes (Death, Life-Threatening, Hospitalization)
  Sender: FDA-Public Use
  Company Number: JP-BAYER-2018-170033

PATIENT
  Age: 55 Year
  Sex: Male
  Weight: 69.1 kg

DRUGS (4)
  1. STIVARGA [Suspect]
     Active Substance: REGORAFENIB
     Indication: COLORECTAL CANCER RECURRENT
     Dosage: DAILY DOSE 160 MG, 3 WEEKS ON THERAPY FOLLOWED BY 1 WEEK OFF
     Route: 048
     Dates: start: 20180705, end: 20180802
  2. RYTHMODAN [Concomitant]
     Active Substance: DISOPYRAMIDE
     Dosage: DAILY DOSE 150 MG
     Route: 048
     Dates: end: 20180802
  3. OLMESARTAN [Concomitant]
     Active Substance: OLMESARTAN
     Dosage: DAILY DOSE 10 MG
     Route: 048
     Dates: end: 20180802
  4. EDOXABAN [Concomitant]
     Active Substance: EDOXABAN TOSYLATE
     Dosage: DAILY DOSE 30 MG
     Route: 048
     Dates: end: 20180802

REACTIONS (15)
  - Malaise [Fatal]
  - Physical deconditioning [Fatal]
  - Hepatic encephalopathy [Fatal]
  - Platelet count decreased [Fatal]
  - Jaundice [Fatal]
  - Hepatic failure [Fatal]
  - Coagulation factor decreased [Fatal]
  - Blood bilirubin increased [Fatal]
  - Renal failure [Recovered/Resolved]
  - Renal impairment [Recovered/Resolved]
  - Ammonia increased [Fatal]
  - Hepatic function abnormal [Fatal]
  - Hepatic enzyme increased [Fatal]
  - Decreased appetite [Fatal]
  - Urine output decreased [Recovered/Resolved]

NARRATIVE: CASE EVENT DATE: 20180802
